FAERS Safety Report 4771068-8 (Version None)
Quarter: 2005Q3

REPORT INFORMATION
  Report Type: 
  Country: None (occurrence: None)
  Receive Date: 20050915
  Receipt Date: 20050624
  Transmission Date: 20060218
  Serious: Yes (Disabling)
  Sender: FDA-Public Use
  Company Number: CR-GILEAD-2005-0008460

PATIENT
  Sex: Male

DRUGS (7)
  1. TENOFOVIR DISOPROXIL FUMARATE [Suspect]
     Indication: HIV INFECTION
     Route: 048
     Dates: start: 20020731, end: 20050501
  2. VIDEX [Suspect]
     Indication: HIV INFECTION
     Route: 048
     Dates: start: 20020731, end: 20050501
  3. LOPINAVIR [Suspect]
     Indication: HIV INFECTION
     Route: 048
     Dates: start: 20020716, end: 20050501
  4. RITONAVIR [Suspect]
     Indication: HIV INFECTION
     Route: 048
     Dates: start: 20020716, end: 20050501
  5. OMEPRAZOLE [Concomitant]
     Dates: start: 20050328
  6. MULTI-VITAMIN [Concomitant]
     Dates: start: 20050328
  7. ALDACTONE [Concomitant]
     Dates: start: 20050419

REACTIONS (1)
  - HEPATIC CIRRHOSIS [None]
